FAERS Safety Report 24409782 (Version 2)
Quarter: 2024Q4

REPORT INFORMATION
  Report Type: Report from Study
  Country: RS (occurrence: RS)
  Receive Date: 20241008
  Receipt Date: 20241105
  Transmission Date: 20250114
  Serious: Yes (Other)
  Sender: ROCHE
  Company Number: RS-ROCHE-10000092430

PATIENT

DRUGS (1)
  1. ATEZOLIZUMAB [Suspect]
     Active Substance: ATEZOLIZUMAB
     Indication: Non-small cell lung cancer
     Route: 065

REACTIONS (6)
  - Hepatotoxicity [Unknown]
  - Fatigue [Unknown]
  - Diarrhoea [Unknown]
  - Hyperthyroidism [Unknown]
  - Skin toxicity [Unknown]
  - Pneumonitis [Unknown]
